FAERS Safety Report 22366282 (Version 2)
Quarter: 2023Q2

REPORT INFORMATION
  Report Type: Spontaneous
  Country: LT (occurrence: LT)
  Receive Date: 20230525
  Receipt Date: 20230531
  Transmission Date: 20230721
  Serious: Yes (Other)
  Sender: FDA-Public Use
  Company Number: LT-SUN PHARMACEUTICAL INDUSTRIES LTD-2023R1-389821

PATIENT
  Age: 30 Year
  Sex: Female

DRUGS (14)
  1. PAROXETINE [Suspect]
     Active Substance: PAROXETINE
     Indication: Vomiting
     Dosage: 20 MILLIGRAM, DAILY
     Route: 065
  2. DIAZEPAM [Suspect]
     Active Substance: DIAZEPAM
     Indication: Vomiting
     Dosage: 5 MILLIGRAM, DAILY
     Route: 065
  3. ONDANSETRON [Suspect]
     Active Substance: ONDANSETRON
     Indication: Vomiting
     Dosage: 4MG/2ML
     Route: 042
  4. METOCLOPRAMIDE [Suspect]
     Active Substance: METOCLOPRAMIDE
     Indication: Vomiting
     Dosage: 10 MILLIGRAM
     Route: 042
  5. LORAZEPAM [Suspect]
     Active Substance: LORAZEPAM
     Indication: Mixed anxiety and depressive disorder
     Dosage: 0.5 MILLIGRAM, TID
     Route: 065
  6. ESCITALOPRAM [Suspect]
     Active Substance: ESCITALOPRAM OXALATE
     Indication: Vomiting
     Dosage: 10 MILLIGRAM, DAILY
     Route: 065
  7. HALOPERIDOL [Suspect]
     Active Substance: HALOPERIDOL
     Indication: Vomiting
     Dosage: 1 MILLIGRAM
     Route: 030
  8. POTASSIUM CHLORIDE [Suspect]
     Active Substance: POTASSIUM CHLORIDE
     Indication: Hypokalaemia
     Dosage: UNK
     Route: 042
  9. SULPIRIDE [Suspect]
     Active Substance: SULPIRIDE
     Indication: Vomiting
     Dosage: 200 MILLIGRAM, DAILY
     Route: 065
  10. TIAPRIDE [Suspect]
     Active Substance: TIAPRIDE
     Indication: Vomiting
     Dosage: 300 MILLIGRAM, DAILY
     Route: 065
  11. SODIUM CHLORIDE [Concomitant]
     Active Substance: SODIUM CHLORIDE
     Indication: Diabetes mellitus management
     Dosage: UNK
     Route: 042
  12. Diasip [Concomitant]
     Indication: Type 1 diabetes mellitus
     Dosage: ONE BOTTLE A DAY
     Route: 065
  13. FIASP [Concomitant]
     Active Substance: INSULIN ASPART
     Indication: Type 1 diabetes mellitus
     Dosage: UNK
     Route: 065
  14. LANTUS [Concomitant]
     Active Substance: INSULIN GLARGINE
     Indication: Type 1 diabetes mellitus
     Dosage: UNK
     Route: 065

REACTIONS (3)
  - Drug ineffective [Unknown]
  - Exposure during pregnancy [Unknown]
  - Live birth [Unknown]
